FAERS Safety Report 10342528 (Version 1)
Quarter: 2014Q3

REPORT INFORMATION
  Report Type: Spontaneous
  Country: GB (occurrence: GB)
  Receive Date: 20140725
  Receipt Date: 20140725
  Transmission Date: 20150326
  Serious: Yes (Other)
  Sender: FDA-Public Use
  Company Number: PHHY2014GB087615

PATIENT
  Age: 78 Year
  Sex: Male

DRUGS (2)
  1. OZURDEX [Suspect]
     Active Substance: DEXAMETHASONE
     Indication: CYSTOID MACULAR OEDEMA
  2. LIDOCAINE. [Suspect]
     Active Substance: LIDOCAINE
     Indication: ANAESTHESIA
     Route: 057

REACTIONS (4)
  - Lenticular opacities [Recovered/Resolved]
  - Foreign body in eye [Recovered/Resolved]
  - Complication of device insertion [Recovered/Resolved]
  - Conjunctival oedema [Unknown]
